FAERS Safety Report 8208386-7 (Version None)
Quarter: 2012Q1

REPORT INFORMATION
  Report Type: 
  Country: None (occurrence: None)
  Receive Date: 20120227
  Receipt Date: 20120104
  Transmission Date: 20120608
  Serious: No
  Sender: FDA-Public Use
  Company Number: 342526

PATIENT
  Age: 65 Year
  Sex: Male

DRUGS (1)
  1. VICTOZA [Suspect]
     Indication: TYPE 2 DIABETES MELLITUS
     Dosage: SEE IMAGE
     Route: 058

REACTIONS (4)
  - DIABETES MELLITUS INADEQUATE CONTROL [None]
  - ABDOMINAL DISCOMFORT [None]
  - ERUCTATION [None]
  - DECREASED APPETITE [None]
